APPROVED DRUG PRODUCT: GASTROCROM
Active Ingredient: CROMOLYN SODIUM
Strength: 100MG
Dosage Form/Route: CAPSULE;ORAL
Application: N019188 | Product #001
Applicant: UCB INC
Approved: Dec 22, 1989 | RLD: No | RS: No | Type: DISCN